FAERS Safety Report 15680970 (Version 1)
Quarter: 2018Q4

REPORT INFORMATION
  Report Type: Spontaneous
  Country: IT (occurrence: IT)
  Receive Date: 20181203
  Receipt Date: 20181203
  Transmission Date: 20190205
  Serious: Yes (Hospitalization)
  Sender: FDA-Public Use
  Company Number: IT-SA-2018SA321919

PATIENT
  Age: 83 Year
  Sex: Female

DRUGS (13)
  1. COAPROVEL [Suspect]
     Active Substance: HYDROCHLOROTHIAZIDE\IRBESARTAN
     Indication: HYPERTENSION
     Route: 048
  2. LOBIVON [Concomitant]
     Active Substance: NEBIVOLOL HYDROCHLORIDE
     Indication: HYPERTENSION
  3. CITALOPRAM [Concomitant]
     Active Substance: CITALOPRAM HYDROBROMIDE
     Route: 065
  4. TICHE [Concomitant]
     Indication: HYPOTHYROIDISM
     Route: 065
  5. TICHE 175 MICROGRAMMI CAPSULE MOLLI [Concomitant]
     Indication: HYPOTHYROIDISM
  6. CARDIOASPIRIN [Concomitant]
     Active Substance: ASPIRIN
     Indication: HYPERTENSION
  7. FOLIC ACID. [Concomitant]
     Active Substance: FOLIC ACID
     Route: 065
  8. ROCALTROL [Interacting]
     Active Substance: CALCITRIOL
     Indication: BONE DISORDER
     Route: 048
  9. CALCIUM SANDOZ [CALCIUM CARBONATE] [Interacting]
     Active Substance: CALCIUM CARBONATE
     Indication: MINERAL SUPPLEMENTATION
     Dosage: 1 DF, QD
     Route: 048
  10. CARDURA [Concomitant]
     Active Substance: DOXAZOSIN MESYLATE
     Indication: CARDIAC DISORDER
     Route: 065
  11. TICHE [Concomitant]
     Indication: HYPOTHYROIDISM
     Route: 065
  12. CARNITENE [CARNITINE HYDROCHLORIDE] [Concomitant]
     Indication: NUTRITIONAL SUPPLEMENTATION
     Route: 065
  13. CIPROFLOXACIN HYDROCHLORIDE. [Concomitant]
     Active Substance: CIPROFLOXACIN HYDROCHLORIDE
     Indication: BRONCHITIS
     Route: 065
     Dates: start: 20180924, end: 20181026

REACTIONS (7)
  - Drug interaction [Unknown]
  - Somnolence [Recovering/Resolving]
  - Headache [Recovering/Resolving]
  - Gait disturbance [Recovering/Resolving]
  - Hypercalcaemia [Recovering/Resolving]
  - Language disorder [Recovering/Resolving]
  - Confusional state [Recovering/Resolving]

NARRATIVE: CASE EVENT DATE: 20181018
